FAERS Safety Report 4315850-X (Version None)
Quarter: 2004Q1

REPORT INFORMATION
  Report Type: 
  Country: None (occurrence: None)
  Receive Date: 20040303
  Receipt Date: 20031103
  Transmission Date: 20041129
  Serious: Yes (Other)
  Sender: FDA-Public Use
  Company Number: US-JNJFOC-20031101063

PATIENT
  Age: 66 Year
  Sex: Female
  Weight: 57.1532 kg

DRUGS (2)
  1. FLOXIN [Suspect]
     Indication: URINARY TRACT INFECTION
     Dosage: 300 MG, 1 IN 1 DAY, ORAL
     Route: 048
     Dates: start: 20031027
  2. CIPRO [Concomitant]

REACTIONS (1)
  - ANAPHYLACTOID REACTION [None]
